FAERS Safety Report 20904225 (Version 1)
Quarter: 2022Q2

REPORT INFORMATION
  Report Type: Spontaneous
  Country: JP (occurrence: JP)
  Receive Date: 20220602
  Receipt Date: 20220602
  Transmission Date: 20220721
  Serious: Yes (Other)
  Sender: FDA-Public Use
  Company Number: JP-BRISTOL-MYERS SQUIBB COMPANY-2022-048556

PATIENT
  Age: 53 Year
  Sex: Female

DRUGS (1)
  1. TRIAMCINOLONE ACETONIDE [Suspect]
     Active Substance: TRIAMCINOLONE ACETONIDE
     Indication: Epicondylitis

REACTIONS (3)
  - Tendon rupture [Recovered/Resolved]
  - Ligament rupture [Recovered/Resolved]
  - Muscle rupture [Recovered/Resolved]
